FAERS Safety Report 9927533 (Version 1)
Quarter: 2014Q1

REPORT INFORMATION
  Report Type: Spontaneous
  Country: LB (occurrence: LB)
  Receive Date: 20140227
  Receipt Date: 20140227
  Transmission Date: 20141002
  Serious: Yes (Death)
  Sender: FDA-Public Use
  Company Number: LB-ROCHE-1355643

PATIENT
  Age: 40 Year
  Sex: Male

DRUGS (4)
  1. AVASTIN [Suspect]
     Indication: COLON CANCER METASTATIC
     Route: 065
  2. LEUCOVORIN [Concomitant]
     Indication: COLON CANCER METASTATIC
  3. 5-FU [Concomitant]
     Indication: COLON CANCER METASTATIC
  4. IRINOTECAN [Concomitant]
     Indication: COLON CANCER METASTATIC

REACTIONS (1)
  - Aortic aneurysm [Fatal]
